FAERS Safety Report 7581104-1 (Version None)
Quarter: 2011Q2

REPORT INFORMATION
  Report Type: 
  Country: None (occurrence: None)
  Receive Date: 20110527
  Receipt Date: 20110328
  Transmission Date: 20111010
  Serious: Yes (Other)
  Sender: FDA-Public Use
  Company Number: US201103000229

PATIENT
  Weight: 96.1 kg

DRUGS (7)
  1. ZOVIRAX /00587301/ (ACICLOVIR) [Concomitant]
  2. CALCIUM MAGNESIUM (CALCIUM, MAGNESIUM) [Concomitant]
  3. METFORMIN HCL [Concomitant]
  4. ASPIRIN [Concomitant]
  5. VITAMIN D [Concomitant]
  6. BYETTA [Suspect]
     Indication: TYPE 2 DIABETES MELLITUS
     Dosage: 5 UG BID, SUBCUTANEOUS ; 10 UG, BID, SUBCUTANEOUS
     Route: 058
     Dates: start: 20070521
  7. AVAPRO [Concomitant]

REACTIONS (2)
  - PANCREATITIS [None]
  - WEIGHT DECREASED [None]
